FAERS Safety Report 16269095 (Version 1)
Quarter: 2019Q2

REPORT INFORMATION
  Report Type: Spontaneous
  Country: US (occurrence: US)
  Receive Date: 20190328
  Receipt Date: 20190328
  Transmission Date: 20190711
  Serious: No
  Sender: FDA-Public Use
  Company Number: None

PATIENT
  Age: 59 Year
  Sex: Female

DRUGS (1)
  1. SOFOSBUVIR/VELPATASIR 400-100 MG [Suspect]
     Active Substance: SOFOSBUVIR\VELPATASVIR
     Dates: start: 201903

REACTIONS (3)
  - Musculoskeletal pain [None]
  - Therapeutic response unexpected [None]
  - Fatigue [None]

NARRATIVE: CASE EVENT DATE: 20190321
